FAERS Safety Report 24075406 (Version 1)
Quarter: 2024Q3

REPORT INFORMATION
  Report Type: Spontaneous
  Country: US (occurrence: US)
  Receive Date: 20240710
  Receipt Date: 20240710
  Transmission Date: 20241017
  Serious: No
  Sender: NOVARTIS
  Company Number: US-002147023-NVSC2024US142034

PATIENT
  Sex: Female

DRUGS (2)
  1. LETROZOLE [Suspect]
     Active Substance: LETROZOLE
     Indication: Hormone receptor positive HER2 negative breast cancer
     Dosage: 2.5 MG
     Route: 048
     Dates: start: 202108
  2. IBRANCE [Suspect]
     Active Substance: PALBOCICLIB
     Indication: Hormone receptor positive HER2 negative breast cancer
     Dosage: 145 MG (TAKE 1 TABLET BY MOUTH ONCE DAILY WITH OR WITHOUT FOOD ON DAYS 1-21 EVERY 28 DAY CYCLE)
     Route: 048
     Dates: start: 202108

REACTIONS (13)
  - Nausea [Unknown]
  - Weight decreased [Recovering/Resolving]
  - Alopecia [Recovering/Resolving]
  - Bone disorder [Not Recovered/Not Resolved]
  - Tooth fracture [Not Recovered/Not Resolved]
  - Axillary pain [Recovering/Resolving]
  - Trichorrhexis [Recovering/Resolving]
  - Localised oedema [Recovering/Resolving]
  - Bone pain [Recovering/Resolving]
  - Pain [Recovering/Resolving]
  - Skin exfoliation [Recovering/Resolving]
  - Incontinence [Recovering/Resolving]
  - Hot flush [Recovered/Resolved]
